FAERS Safety Report 23971953 (Version 3)
Quarter: 2024Q3

REPORT INFORMATION
  Report Type: Report from Study
  Country: US (occurrence: US)
  Receive Date: 20240613
  Receipt Date: 20240808
  Transmission Date: 20241016
  Serious: Yes (Other)
  Sender: ABBVIE
  Company Number: US-ABBVIE-5797563

PATIENT
  Sex: Female

DRUGS (2)
  1. HUMIRA [Suspect]
     Active Substance: ADALIMUMAB
     Indication: Rheumatoid arthritis
     Dosage: FORM STRENGTH: 40 MG
     Route: 058
     Dates: start: 20200715
  2. HUMIRA [Suspect]
     Active Substance: ADALIMUMAB
     Route: 058

REACTIONS (6)
  - Foot operation [Unknown]
  - Neuropathy peripheral [Unknown]
  - Arthralgia [Not Recovered/Not Resolved]
  - Nerve compression [Not Recovered/Not Resolved]
  - Limb operation [Unknown]
  - Bone pain [Unknown]

NARRATIVE: CASE EVENT DATE: 20220101
